FAERS Safety Report 9197328 (Version 1)
Quarter: 2013Q1

REPORT INFORMATION
  Report Type: Spontaneous
  Country: US (occurrence: US)
  Receive Date: 20130328
  Receipt Date: 20130328
  Transmission Date: 20140127
  Serious: Yes (Hospitalization)
  Sender: FDA-Public Use
  Company Number: US-GLAXOSMITHKLINE-A0667649A

PATIENT
  Age: 67 Year
  Sex: Male

DRUGS (4)
  1. AVANDIA [Suspect]
     Indication: TYPE 2 DIABETES MELLITUS
     Dosage: 4MG PER DAY
     Route: 048
     Dates: start: 2000, end: 20070824
  2. ASA [Concomitant]
  3. LIPITOR [Concomitant]
  4. UNKNOWN DIURETIC [Concomitant]

REACTIONS (5)
  - Renal failure acute [Not Recovered/Not Resolved]
  - Myocardial infarction [Unknown]
  - Cardiovascular disorder [Unknown]
  - Leg amputation [Unknown]
  - Joint swelling [Unknown]
